FAERS Safety Report 5229338-5 (Version None)
Quarter: 2007Q1

REPORT INFORMATION
  Report Type: 
  Country: None (occurrence: None)
  Receive Date: 20061201
  Receipt Date: 20051205
  Transmission Date: 20070707
  Serious: Yes (Other)
  Sender: FDA-Public Use
  Company Number: 2005-134627-NL

PATIENT
  Age: 26 Year
  Sex: Female
  Weight: 102.3 kg

DRUGS (1)
  1. NUVARING [Suspect]
     Indication: CONTRACEPTION
     Dosage: VAGINAL
     Route: 067
     Dates: start: 20041001, end: 20051024

REACTIONS (1)
  - ECTOPIC PREGNANCY [None]
